FAERS Safety Report 10097462 (Version 1)
Quarter: 2014Q2

REPORT INFORMATION
  Report Type: Spontaneous
  Country: US (occurrence: US)
  Receive Date: 20140423
  Receipt Date: 20140423
  Transmission Date: 20141212
  Serious: No
  Sender: FDA-Public Use
  Company Number: US-009507513-1404USA010937

PATIENT
  Sex: Female

DRUGS (1)
  1. FOSAMAX [Suspect]
     Dosage: TOOK IT FOR 3 MONTHS AND DISCONTINUED IT FOR 9 MONTHS
     Route: 048

REACTIONS (3)
  - Inappropriate schedule of drug administration [Unknown]
  - Drug administration error [Unknown]
  - No adverse event [Unknown]
